FAERS Safety Report 4481077-4 (Version None)
Quarter: 2004Q4

REPORT INFORMATION
  Report Type: 
  Country: None (occurrence: None)
  Receive Date: 20040923
  Receipt Date: 20040608
  Transmission Date: 20050328
  Serious: No
  Sender: FDA-Public Use
  Company Number: USA031254584

PATIENT
  Age: 82 Year
  Sex: Female
  Weight: 64 kg

DRUGS (1)
  1. FORTEO [Suspect]
     Indication: OSTEOPOROSIS
     Dosage: 20 UG/1 DAY
     Dates: start: 20031201

REACTIONS (6)
  - FALL [None]
  - FEELING ABNORMAL [None]
  - HEARING IMPAIRED [None]
  - INJECTION SITE HAEMORRHAGE [None]
  - NAUSEA [None]
  - SINUSITIS [None]
